FAERS Safety Report 21606741 (Version 2)
Quarter: 2025Q3

REPORT INFORMATION
  Report Type: Spontaneous
  Country: EU (occurrence: EU)
  Receive Date: 20221117
  Receipt Date: 20250814
  Transmission Date: 20251021
  Serious: Yes (Hospitalization, Other)
  Sender: AUROBINDO
  Company Number: EU-SA-2022SA446605

PATIENT
  Age: 69 Year
  Sex: Female

DRUGS (3)
  1. AMIODARONE [Suspect]
     Active Substance: AMIODARONE
     Indication: Product used for unknown indication
     Route: 065
  2. AMOXICILLIN\CLAVULANIC ACID [Suspect]
     Active Substance: AMOXICILLIN\CLAVULANIC ACID
     Indication: Respiratory tract infection
     Route: 065
  3. PIPERACILLIN AND TAZOBACTAM [Suspect]
     Active Substance: PIPERACILLIN SODIUM\TAZOBACTAM SODIUM
     Indication: Nosocomial infection
     Route: 065

REACTIONS (5)
  - Lung diffusion disorder [Unknown]
  - Hepatitis toxic [Unknown]
  - Lung opacity [Unknown]
  - Hepatic enzyme increased [Recovered/Resolved]
  - Cell death [Recovering/Resolving]
